FAERS Safety Report 7095972-3 (Version None)
Quarter: 2010Q4

REPORT INFORMATION
  Report Type: 
  Country: None (occurrence: None)
  Receive Date: 20101109
  Receipt Date: 20101109
  Transmission Date: 20110411
  Serious: Yes (Other)
  Sender: FDA-Public Use
  Company Number: None

PATIENT
  Age: 31 Year
  Sex: Female
  Weight: 49.4421 kg

DRUGS (2)
  1. PROMETHAZINE [Suspect]
     Indication: NAUSEA
     Dosage: 1 TABLET 8 HOURS PO
     Route: 048
     Dates: start: 20101108, end: 20101108
  2. PROMETHAZINE [Suspect]
     Indication: PREGNANCY
     Dosage: 1 TABLET 8 HOURS PO
     Route: 048
     Dates: start: 20101108, end: 20101108

REACTIONS (2)
  - FEELING ABNORMAL [None]
  - RESTLESS LEGS SYNDROME [None]
